FAERS Safety Report 10446878 (Version 2)
Quarter: 2014Q3

REPORT INFORMATION
  Report Type: Spontaneous
  Country: US (occurrence: None)
  Receive Date: 20140909
  Receipt Date: 20140918
  Transmission Date: 20150326
  Serious: Yes (Other)
  Sender: FDA-Public Use
  Company Number: 2014NUEUSA00362

PATIENT
  Age: 64 Year
  Sex: Male

DRUGS (23)
  1. PLAVIX (CLOPIDOGREL BISULFATE) [Concomitant]
  2. DUONEB (IPRATROPIUM BROMIDE, SALBUTAMOL SULFATE) [Concomitant]
  3. HYDROCHLOROTHIAZIDE. [Concomitant]
     Active Substance: HYDROCHLOROTHIAZIDE
  4. FLOMAX [Concomitant]
     Active Substance: TAMSULOSIN HYDROCHLORIDE
  5. AMITRIPTYLINE [Concomitant]
     Active Substance: AMITRIPTYLINE
  6. DEXILANT [Concomitant]
     Active Substance: DEXLANSOPRAZOLE
  7. GLIPIZIDE. [Concomitant]
     Active Substance: GLIPIZIDE
  8. ASPIRIN (ACETYLSALICYLIC ACID) [Concomitant]
     Active Substance: ASPIRIN
  9. PROAIR HFA [Concomitant]
     Active Substance: ALBUTEROL SULFATE
  10. AMIODARONE HCL (AMIODARONE HYDROCHLORIDE) [Concomitant]
     Active Substance: AMIODARONE HYDROCHLORIDE
  11. ALLEGRA D (FEXOFENADINE HYDROCHLORIDE, PSEUDOEPHEDRINE HYDROCHLORIDE) [Concomitant]
  12. NUEDEXTA [Suspect]
     Active Substance: DEXTROMETHORPHAN HYDROBROMIDE\QUINIDINE SULFATE
     Indication: AFFECT LABILITY
     Dosage: 1 CAP, BID, ORAL
     Route: 048
     Dates: start: 20130809, end: 20140805
  13. LYRICA [Concomitant]
     Active Substance: PREGABALIN
  14. TAMSULOSIN [Concomitant]
     Active Substance: TAMSULOSIN
  15. NITROSTAT (GLYCERYL TRINITRATE) [Concomitant]
  16. COREG [Concomitant]
     Active Substance: CARVEDILOL
  17. LASIX [Concomitant]
     Active Substance: FUROSEMIDE
  18. MOBIC [Concomitant]
     Active Substance: MELOXICAM
  19. OMEGA 3 (FISH OIL) [Concomitant]
     Active Substance: OMEGA-3 FATTY ACIDS
  20. LIPITOR [Concomitant]
     Active Substance: ATORVASTATIN CALCIUM
  21. SPIRONOLACTONE. [Concomitant]
     Active Substance: SPIRONOLACTONE
  22. NIASPAN (NICOTINIC ACID) [Concomitant]
  23. FINASTERIDE. [Concomitant]
     Active Substance: FINASTERIDE

REACTIONS (4)
  - Orthostatic hypotension [None]
  - Loss of consciousness [None]
  - Syncope [None]
  - Cardiac disorder [None]

NARRATIVE: CASE EVENT DATE: 201310
